FAERS Safety Report 4278169-1 (Version None)
Quarter: 2004Q1

REPORT INFORMATION
  Report Type: 
  Country: None (occurrence: None)
  Receive Date: 20040121
  Receipt Date: 20040105
  Transmission Date: 20041129
  Serious: Yes (Other)
  Sender: FDA-Public Use
  Company Number: 2004-06541

PATIENT
  Age: 29 Year
  Sex: Female

DRUGS (3)
  1. VIREAD [Suspect]
     Indication: HIV INFECTION
     Dosage: 100 MG QD PO
     Route: 048
     Dates: start: 20031008, end: 20031105
  2. VIRAMUNE [Suspect]
     Indication: HIV INFECTION
     Dosage: 200 MG QD PO
     Route: 048
     Dates: start: 20031008, end: 20031105
  3. VIDEX [Suspect]
     Indication: HIV INFECTION
     Dosage: 200 MG QD PO
     Route: 048
     Dates: start: 20031008, end: 20031105

REACTIONS (9)
  - DRUG INTERACTION POTENTIATION [None]
  - DRUG RASH WITH EOSINOPHILIA AND SYSTEMIC SYMPTOMS [None]
  - HEPATIC TRAUMA [None]
  - HEPATITIS ACUTE [None]
  - HYPERSENSITIVITY [None]
  - LACTIC ACIDOSIS [None]
  - PANCREATITIS [None]
  - PROTEINURIA [None]
  - UROBILINURIA [None]
